FAERS Safety Report 18939655 (Version 1)
Quarter: 2021Q1

REPORT INFORMATION
  Report Type: Spontaneous
  Country: US (occurrence: US)
  Receive Date: 20210224
  Receipt Date: 20210224
  Transmission Date: 20210420
  Serious: No
  Sender: FDA-Public Use
  Company Number: US-UPSHER-SMITH LABORATORIES, LLC-2020USL00537

PATIENT
  Age: 35 Year
  Sex: Male

DRUGS (1)
  1. ZEMBRACE SYMTOUCH [Suspect]
     Active Substance: SUMATRIPTAN SUCCINATE

REACTIONS (1)
  - Headache [Unknown]
